FAERS Safety Report 14289535 (Version 1)
Quarter: 2017Q4

REPORT INFORMATION
  Report Type: Spontaneous
  Country: US (occurrence: US)
  Receive Date: 20171215
  Receipt Date: 20171215
  Transmission Date: 20180321
  Serious: Yes (Hospitalization, Other)
  Sender: FDA-Public Use
  Company Number: US-APOTEX-2017AP022854

PATIENT
  Age: 62 Year
  Sex: Female

DRUGS (2)
  1. TAMOXIFEN CITRATE TABLETS USP [Suspect]
     Active Substance: TAMOXIFEN CITRATE
     Indication: PROPHYLAXIS
  2. TAMOXIFEN CITRATE TABLETS USP [Suspect]
     Active Substance: TAMOXIFEN CITRATE
     Indication: BREAST HYPERPLASIA
     Dosage: 20 MG, DAILY
     Route: 065

REACTIONS (3)
  - Genital disorder female [Unknown]
  - Urinary tract obstruction [Recovered/Resolved]
  - Endometriosis [Unknown]
